FAERS Safety Report 4684126-3 (Version None)
Quarter: 2005Q2

REPORT INFORMATION
  Report Type: 
  Country: None (occurrence: None)
  Receive Date: 20050526
  Receipt Date: 20050322
  Transmission Date: 20051028
  Serious: Yes (Hospitalization)
  Sender: FDA-Public Use
  Company Number: 05P-163-0294780

PATIENT
  Age: 41 Year
  Sex: Female
  Weight: 72.5755 kg

DRUGS (7)
  1. DEPAKOTE ER [Suspect]
     Indication: BIPOLAR DISORDER
     Dosage: 500 MG, 2 IN 1 D, PER ORAL
     Route: 048
     Dates: start: 20000101
  2. GEMFIBROZIL [Suspect]
     Indication: BLOOD TRIGLYCERIDES INCREASED
     Dosage: PER ORAL
     Route: 048
     Dates: start: 20050101, end: 20050121
  3. CARBAMAZEPINE [Concomitant]
  4. NORTRIPTYLINE HCL [Concomitant]
  5. LEXAPRO [Concomitant]
  6. LEVOTHYROXINE SODIUM [Concomitant]
  7. VERAPAMIL [Concomitant]

REACTIONS (1)
  - PANCREATITIS [None]
